FAERS Safety Report 18154637 (Version 5)
Quarter: 2020Q3

REPORT INFORMATION
  Report Type: Spontaneous
  Country: US (occurrence: US)
  Receive Date: 20200817
  Receipt Date: 20200911
  Transmission Date: 20201103
  Serious: No
  Sender: FDA-Public Use
  Company Number: US-BEH-2020121175

PATIENT
  Age: 60 Year
  Sex: Female

DRUGS (15)
  1. PRIVIGEN [Suspect]
     Active Substance: HUMAN IMMUNOGLOBULIN G
     Dosage: 10 GRAM, QW
     Route: 042
     Dates: start: 20200807
  2. BENADRYL [Concomitant]
     Active Substance: DIPHENHYDRAMINE HYDROCHLORIDE
     Dosage: 25 MILLIGRAM
  3. FABRAZYME [Concomitant]
     Active Substance: AGALSIDASE BETA
     Dosage: UNK
     Dates: start: 20200831
  4. PRIVIGEN [Suspect]
     Active Substance: HUMAN IMMUNOGLOBULIN G
     Indication: FABRY^S DISEASE
     Dosage: 30 GRAM, QW
     Route: 042
     Dates: start: 20200814
  5. PRIVIGEN [Suspect]
     Active Substance: HUMAN IMMUNOGLOBULIN G
     Dosage: UNK
     Route: 042
     Dates: start: 20200820, end: 20200820
  6. PRIVIGEN [Suspect]
     Active Substance: HUMAN IMMUNOGLOBULIN G
     Dosage: 10 GRAM, QW
     Route: 042
     Dates: start: 20200804
  7. PRIVIGEN [Suspect]
     Active Substance: HUMAN IMMUNOGLOBULIN G
     Dosage: UNK
     Route: 042
     Dates: start: 20200827, end: 20200827
  8. FABRAZYME [Concomitant]
     Active Substance: AGALSIDASE BETA
     Dosage: UNK, Q3W
  9. PRIVIGEN [Suspect]
     Active Substance: HUMAN IMMUNOGLOBULIN G
     Dosage: 20 GRAM, QW
     Route: 042
     Dates: start: 20200807
  10. BENADRYL [Concomitant]
     Active Substance: DIPHENHYDRAMINE HYDROCHLORIDE
     Dosage: 25 MILLIGRAM
     Route: 065
     Dates: start: 20200820, end: 20200820
  11. PRIVIGEN [Suspect]
     Active Substance: HUMAN IMMUNOGLOBULIN G
     Indication: KIDNEY TRANSPLANT REJECTION
     Dosage: 30 GRAM, QW
     Route: 042
     Dates: start: 20200806
  12. PRIVIGEN [Suspect]
     Active Substance: HUMAN IMMUNOGLOBULIN G
     Dosage: 20 GRAM, QW
     Route: 042
     Dates: start: 20200804
  13. BENADRYL [Concomitant]
     Active Substance: DIPHENHYDRAMINE HYDROCHLORIDE
     Indication: PREMEDICATION
     Dosage: 12.5 MILLIGRAM
     Route: 065
  14. BENADRYL [Concomitant]
     Active Substance: DIPHENHYDRAMINE HYDROCHLORIDE
     Dosage: 25 MILLIGRAM
     Route: 065
     Dates: start: 20200827
  15. TRICOR [ADENOSINE] [Concomitant]
     Active Substance: ADENOSINE
     Dosage: UNK
     Route: 065

REACTIONS (15)
  - Paraesthesia [Unknown]
  - Blood pressure increased [Unknown]
  - Chest discomfort [Recovered/Resolved]
  - Ill-defined disorder [Unknown]
  - Decreased appetite [Unknown]
  - Infusion site pain [Recovering/Resolving]
  - Somnolence [Unknown]
  - Blood pressure increased [Recovered/Resolved]
  - Chest discomfort [Not Recovered/Not Resolved]
  - Decreased appetite [Unknown]
  - No adverse event [Unknown]
  - Product use in unapproved indication [Unknown]
  - Hypoaesthesia [Unknown]
  - Dizziness [Recovering/Resolving]
  - Chest discomfort [Unknown]

NARRATIVE: CASE EVENT DATE: 202008
